FAERS Safety Report 7130608-4 (Version None)
Quarter: 2010Q4

REPORT INFORMATION
  Report Type: 
  Country: None (occurrence: None)
  Receive Date: 20101029
  Receipt Date: 20100603
  Transmission Date: 20110411
  Serious: No
  Sender: FDA-Public Use
  Company Number: US-002197

PATIENT
  Sex: Male

DRUGS (13)
  1. FIRMAGON [Suspect]
     Indication: PROSTATE CANCER
     Dosage: (240 MG TOTAL SUBCUTANEOUS), (80 MG 1X/MONTH  SUBCUTANEOUS)
     Route: 058
     Dates: start: 20091103, end: 20100628
  2. FIRMAGON [Suspect]
     Indication: PROSTATE CANCER
     Dosage: (240 MG TOTAL SUBCUTANEOUS), (80 MG 1X/MONTH  SUBCUTANEOUS)
     Route: 058
     Dates: start: 20091010
  3. ACTOPUS MET [Concomitant]
  4. AMARYL [Concomitant]
  5. CALCIUM [Concomitant]
  6. CENTRUM SILVER [Concomitant]
  7. DIGOXIN [Concomitant]
  8. FENOFIBRATE [Concomitant]
  9. LASIX /0032601/ [Concomitant]
  10. LIPITOR [Concomitant]
  11. MEXILETINE [Concomitant]
  12. OMEGA-3 TRIGLYCERIDES [Concomitant]
  13. SOTALOL [Concomitant]

REACTIONS (3)
  - ACTIVITIES OF DAILY LIVING IMPAIRED [None]
  - ASTHENIA [None]
  - DYSPNOEA [None]
